FAERS Safety Report 23229027 (Version 1)
Quarter: 2023Q4

REPORT INFORMATION
  Report Type: Spontaneous
  Country: US (occurrence: None)
  Receive Date: 20231126
  Receipt Date: 20231126
  Transmission Date: 20240110
  Serious: No
  Sender: FDA-Public Use
  Company Number: US-Encube-000520

PATIENT
  Age: 87 Year
  Sex: Female

DRUGS (1)
  1. DICLOFENAC SODIUM [Suspect]
     Active Substance: DICLOFENAC\DICLOFENAC SODIUM
     Indication: Product used for unknown indication
     Dates: start: 20231116, end: 20231116

REACTIONS (2)
  - Application site burn [Unknown]
  - Wrong product administered [Unknown]

NARRATIVE: CASE EVENT DATE: 20231116
